FAERS Safety Report 21675875 (Version 1)
Quarter: 2022Q4

REPORT INFORMATION
  Report Type: Spontaneous
  Country: US (occurrence: None)
  Receive Date: 20221202
  Receipt Date: 20221202
  Transmission Date: 20230112
  Serious: Yes (Other)
  Sender: FDA-Public Use
  Company Number: None

PATIENT
  Age: 57 Year
  Sex: Female
  Weight: 81 kg

DRUGS (5)
  1. SULFAMETHOXAZOLE\TRIMETHOPRIM [Suspect]
     Active Substance: SULFAMETHOXAZOLE\TRIMETHOPRIM
     Indication: Sinusitis
     Dosage: FREQUENCY : TWICE A DAY;?
     Route: 048
     Dates: start: 20221121, end: 20221128
  2. ALLERGY ANTIHISTAMINE [Concomitant]
     Active Substance: DIPHENHYDRAMINE HYDROCHLORIDE
  3. Extra strength excedrine [Concomitant]
  4. AMERGE [Concomitant]
     Active Substance: NARATRIPTAN HYDROCHLORIDE
  5. UNSPECIFIED INGREDIENT [Concomitant]
     Active Substance: UNSPECIFIED INGREDIENT

REACTIONS (10)
  - Hypersensitivity [None]
  - Pain [None]
  - Myalgia [None]
  - Pyrexia [None]
  - Pruritus [None]
  - Rash [None]
  - Dizziness [None]
  - Fatigue [None]
  - Nausea [None]
  - Hypophagia [None]

NARRATIVE: CASE EVENT DATE: 20221129
